FAERS Safety Report 6464205-0 (Version None)
Quarter: 2009Q4

REPORT INFORMATION
  Report Type: 
  Country: None (occurrence: None)
  Receive Date: 20091201
  Receipt Date: 20091119
  Transmission Date: 20100525
  Serious: Yes (Other)
  Sender: FDA-Public Use
  Company Number: PHEH2009US16377

PATIENT
  Sex: Female
  Weight: 122.45 kg

DRUGS (12)
  1. RECLAST [Suspect]
     Indication: OSTEOPOROSIS
     Dosage: 5 MG ONCE YEARLY
     Dates: start: 20091109, end: 20091109
  2. LEVOTHYROXINE SODIUM [Concomitant]
     Dosage: 175 MCG
  3. VITAMIN D [Concomitant]
     Dosage: 400 IU
  4. ACTOS [Concomitant]
     Dosage: 70 MG
  5. CELEBREX [Concomitant]
     Dosage: 200 MG
  6. BABY ASPIRIN [Concomitant]
     Dosage: 81 MG
  7. SINGULAIR [Concomitant]
     Dosage: 10 MG, QD
  8. METOPROLOL [Concomitant]
     Dosage: 50 MG
  9. LOVAZA [Concomitant]
     Dosage: 1 DF TID
  10. RAMIPRIL [Concomitant]
     Dosage: 10 MG, QD
  11. METFORMIN HYDROCHLORIDE [Concomitant]
  12. LANTUS [Concomitant]

REACTIONS (1)
  - ASTHMA [None]
